FAERS Safety Report 4955302-7 (Version None)
Quarter: 2006Q1

REPORT INFORMATION
  Report Type: 
  Country: None (occurrence: None)
  Receive Date: 20060328
  Receipt Date: 20040601
  Transmission Date: 20060701
  Serious: Yes (Other)
  Sender: FDA-Public Use
  Company Number: DE-BRISTOL-MYERS SQUIBB COMPANY-13306097

PATIENT
  Age: 52 Year
  Sex: Male
  Weight: 70 kg

DRUGS (7)
  1. ZERIT [Suspect]
     Indication: HIV INFECTION
     Dates: start: 19860101, end: 20020101
  2. LAMIVUDINE [Suspect]
     Indication: HIV INFECTION
     Dates: start: 19860101
  3. TENOFOVIR [Suspect]
     Indication: HIV INFECTION
     Dates: start: 20021128, end: 20030501
  4. ABACAVIR [Suspect]
     Indication: HIV INFECTION
     Dates: start: 20021128, end: 20030501
  5. LOPINAVIR [Suspect]
     Indication: HIV INFECTION
     Dates: start: 20030501
  6. RITONAVIR [Suspect]
     Indication: HIV INFECTION
     Dates: start: 20030501
  7. ZIDOVUDINE [Suspect]
     Indication: HIV INFECTION
     Dates: start: 20030501

REACTIONS (8)
  - ALCOHOL PROBLEM [None]
  - DRUG INEFFECTIVE [None]
  - DRUG RESISTANCE [None]
  - HAIRY CELL LEUKAEMIA [None]
  - HEPATITIS C [None]
  - LEUKOPENIA [None]
  - LYMPHADENOPATHY [None]
  - TRANSAMINASES INCREASED [None]
